FAERS Safety Report 14730738 (Version 2)
Quarter: 2018Q2

REPORT INFORMATION
  Report Type: Spontaneous
  Country: CN (occurrence: CN)
  Receive Date: 20180406
  Receipt Date: 20180412
  Transmission Date: 20180711
  Serious: No
  Sender: FDA-Public Use
  Company Number: CN-ASTRAZENECA-2018SE42780

PATIENT
  Age: 6 Year
  Sex: Male

DRUGS (3)
  1. BRICANYL [Suspect]
     Active Substance: TERBUTALINE SULFATE
     Route: 065
  2. PULMICORT RESPULES [Suspect]
     Active Substance: BUDESONIDE
     Dosage: 1.0MG UNKNOWN
     Route: 055
  3. SALINE [Concomitant]
     Active Substance: SODIUM CHLORIDE
     Dosage: 2ML

REACTIONS (8)
  - Cyanosis [Unknown]
  - Tremor [Not Recovered/Not Resolved]
  - Tachycardia [Unknown]
  - Urine output decreased [Unknown]
  - Body temperature increased [Unknown]
  - Hypokalaemia [Unknown]
  - Urine abnormality [Unknown]
  - Mental disorder [Unknown]
